FAERS Safety Report 15918800 (Version 5)
Quarter: 2019Q2

REPORT INFORMATION
  Report Type: Report from Study
  Country: None (occurrence: CH)
  Receive Date: 20190205
  Receipt Date: 20190430
  Transmission Date: 20190711
  Serious: Yes (Hospitalization, Other)
  Sender: FDA-Public Use
  Company Number: CH-ABBVIE-19S-151-2645044-00

PATIENT
  Age: 74 Year
  Sex: Male

DRUGS (9)
  1. QUETIAPIN [Suspect]
     Active Substance: QUETIAPINE
     Indication: PRODUCT USED FOR UNKNOWN INDICATION
     Route: 065
  2. DUODOPA [Suspect]
     Active Substance: CARBIDOPA\LEVODOPA
     Dosage: MD:9 ML, CRD:4 ML/H, ED:2 ML/H, 16H THERAPY
     Route: 050
     Dates: start: 20180907, end: 20181008
  3. DUODOPA [Suspect]
     Active Substance: CARBIDOPA\LEVODOPA
     Dosage: MD: 7 ML CRD: 4 ML/H CRN: 2 ML/H ED: 2 ML 24 H THERAPY 24 H THERAPY
     Route: 050
     Dates: start: 20190412
  4. DUODOPA [Suspect]
     Active Substance: CARBIDOPA\LEVODOPA
     Indication: PARKINSON^S DISEASE
     Route: 050
     Dates: start: 20180709, end: 20180907
  5. DUODOPA [Suspect]
     Active Substance: CARBIDOPA\LEVODOPA
     Dosage: MD: 7 ML CRD: 4 ML/H CRN: 2 ML/H ED: 2 ML (BLOCKING TIME 1H),24 H THERAPY
     Route: 050
     Dates: start: 201812, end: 20190412
  6. DUODOPA [Suspect]
     Active Substance: CARBIDOPA\LEVODOPA
     Dosage: MD: 7 ML CRD: 4 ML/H CRN: 2 ML/H ED: 2 ML 24 H THERAPY
     Route: 050
     Dates: start: 20190412, end: 20190412
  7. DUODOPA [Suspect]
     Active Substance: CARBIDOPA\LEVODOPA
     Dosage: MD 7 ML, CR DAY 4 ML/H, CR NIGHT 2 ML/H, ED 2 ML, ED BLOCKING TIME 1H, 24 H THERAPY
     Route: 050
  8. DUODOPA [Suspect]
     Active Substance: CARBIDOPA\LEVODOPA
     Dosage: MD:9 ML,CRD:3.8 ML/H,ED:2 ML/H,ONE CASSETTE PER DAY,1H THERAPY
     Route: 050
     Dates: start: 20181008, end: 201812
  9. DUODOPA [Suspect]
     Active Substance: CARBIDOPA\LEVODOPA
     Dosage: 1 CASSETTE PER DAY
     Route: 050

REACTIONS (12)
  - Wrong technique in device usage process [Unknown]
  - Malaise [Recovered/Resolved]
  - Freezing phenomenon [Recovered/Resolved]
  - Tremor [Unknown]
  - Akinesia [Unknown]
  - Hallucination [Recovering/Resolving]
  - Unevaluable event [Recovering/Resolving]
  - Back pain [Not Recovered/Not Resolved]
  - Off label use [Recovered/Resolved]
  - Device dislocation [Recovered/Resolved]
  - General physical health deterioration [Recovered/Resolved]
  - Device occlusion [Recovered/Resolved]

NARRATIVE: CASE EVENT DATE: 20190412
